FAERS Safety Report 18784840 (Version 2)
Quarter: 2021Q2

REPORT INFORMATION
  Report Type: Report from Study
  Country: None (occurrence: NL)
  Receive Date: 20210126
  Receipt Date: 20210518
  Transmission Date: 20210717
  Serious: Yes (Hospitalization, Other)
  Sender: FDA-Public Use
  Company Number: NL-ABBVIE-18K-114-2320840-00

PATIENT
  Age: 75 Year
  Sex: Female
  Weight: 75 kg

DRUGS (6)
  1. DUODOPA [Suspect]
     Active Substance: CARBIDOPA\LEVODOPA
     Route: 050
  2. DUODOPA [Suspect]
     Active Substance: CARBIDOPA\LEVODOPA
     Dosage: MD: 3, CD: 3.4, ED: 1.5, CND: 1.5, END: 1.5
     Route: 050
     Dates: start: 2018
  3. DUODOPA [Suspect]
     Active Substance: CARBIDOPA\LEVODOPA
     Dosage: 24 HOURS ADMINISTRATION
     Route: 050
  4. DUODOPA [Suspect]
     Active Substance: CARBIDOPA\LEVODOPA
     Indication: PARKINSON^S DISEASE
     Dosage: MD 3.0?CD 3.0?ED 1.0
     Route: 050
     Dates: start: 20180201, end: 2018
  5. MOVICOLON [Suspect]
     Active Substance: POLYETHYLENE GLYCOL 3350\POTASSIUM CHLORIDE\SODIUM BICARBONATE\SODIUM CHLORIDE
     Indication: STOOL ANALYSIS
     Dosage: 2 TABLESPOONS DAILY
     Route: 065
  6. DUODOPA [Suspect]
     Active Substance: CARBIDOPA\LEVODOPA
     Dosage: MD: 3.0ML, CD: 3.5ML/H, ED: 1.5ML, EDN: 1.5ML, CND: 2.0ML/H
     Route: 050

REACTIONS (55)
  - Memory impairment [Recovering/Resolving]
  - Loss of personal independence in daily activities [Not Recovered/Not Resolved]
  - Weight fluctuation [Unknown]
  - Medical device site irritation [Unknown]
  - Nightmare [Not Recovered/Not Resolved]
  - Gait disturbance [Not Recovered/Not Resolved]
  - Fatigue [Not Recovered/Not Resolved]
  - Nausea [Recovered/Resolved]
  - Device leakage [Unknown]
  - Device breakage [Unknown]
  - Surgery [Unknown]
  - Faeces hard [Recovered/Resolved]
  - Sleep talking [Not Recovered/Not Resolved]
  - Confusional state [Unknown]
  - Unevaluable event [Not Recovered/Not Resolved]
  - Excessive granulation tissue [Unknown]
  - Stoma site discharge [Recovered/Resolved]
  - Stoma site extravasation [Recovering/Resolving]
  - Investigation abnormal [Not Recovered/Not Resolved]
  - Arthropathy [Not Recovered/Not Resolved]
  - Tension [Not Recovered/Not Resolved]
  - Nocturia [Not Recovered/Not Resolved]
  - Confusional state [Recovered/Resolved]
  - Syncope [Not Recovered/Not Resolved]
  - Stoma site erythema [Not Recovered/Not Resolved]
  - Stoma site discharge [Recovered/Resolved]
  - Mobility decreased [Not Recovered/Not Resolved]
  - Medical device discomfort [Not Recovered/Not Resolved]
  - Dysphonia [Not Recovered/Not Resolved]
  - Frequent bowel movements [Recovered/Resolved]
  - Depressed mood [Not Recovered/Not Resolved]
  - Freezing phenomenon [Not Recovered/Not Resolved]
  - Stoma site discharge [Recovered/Resolved]
  - Stoma site discharge [Recovered/Resolved]
  - Therapeutic product effect decreased [Not Recovered/Not Resolved]
  - Middle insomnia [Not Recovered/Not Resolved]
  - Abnormal dreams [Recovering/Resolving]
  - Stoma site pain [Recovered/Resolved]
  - Parkinson^s disease [Not Recovered/Not Resolved]
  - Medical device site discharge [Unknown]
  - Osteitis [Recovered/Resolved]
  - Sleep disorder [Not Recovered/Not Resolved]
  - Weight decreased [Recovered/Resolved]
  - Diarrhoea [Recovered/Resolved]
  - On and off phenomenon [Not Recovered/Not Resolved]
  - Device dislocation [Unknown]
  - Fibroma [Recovered/Resolved]
  - Poor quality sleep [Not Recovered/Not Resolved]
  - Fibroma [Recovered/Resolved]
  - Impulsive behaviour [Not Recovered/Not Resolved]
  - Restless legs syndrome [Unknown]
  - Musculoskeletal stiffness [Unknown]
  - Dyskinesia [Recovered/Resolved]
  - Bradykinesia [Not Recovered/Not Resolved]
  - Stoma site odour [Recovered/Resolved]

NARRATIVE: CASE EVENT DATE: 2018
